FAERS Safety Report 7106764-0 (Version None)
Quarter: 2010Q4

REPORT INFORMATION
  Report Type: 
  Country: None (occurrence: None)
  Receive Date: 20101116
  Receipt Date: 20101112
  Transmission Date: 20110411
  Serious: Yes (Disabling)
  Sender: FDA-Public Use
  Company Number: DE-MERCK-1010DEU00031

PATIENT
  Age: 70 Year
  Sex: Female

DRUGS (2)
  1. FOSAMAX PLUS D [Suspect]
     Indication: OSTEOPOROSIS
     Route: 048
     Dates: start: 20100701, end: 20100801
  2. VALSARTAN [Concomitant]
     Route: 065

REACTIONS (2)
  - DIPLOPIA [None]
  - VISION BLURRED [None]
